FAERS Safety Report 10196417 (Version 1)
Quarter: 2014Q2

REPORT INFORMATION
  Report Type: Report from Study
  Country: BR (occurrence: BR)
  Receive Date: 20140527
  Receipt Date: 20140527
  Transmission Date: 20141212
  Serious: Yes (Other)
  Sender: FDA-Public Use
  Company Number: BR-SA-2014SA065636

PATIENT
  Age: 33 Year
  Sex: Female

DRUGS (1)
  1. CEREZYME [Suspect]
     Indication: GAUCHER^S DISEASE
     Route: 042
     Dates: start: 1997

REACTIONS (6)
  - Urinary tract infection [Unknown]
  - Headache [Unknown]
  - Malaise [Unknown]
  - Abdominal pain [Unknown]
  - Vomiting [Unknown]
  - Calculus ureteric [Unknown]
